FAERS Safety Report 4747133-8 (Version None)
Quarter: 2005Q3

REPORT INFORMATION
  Report Type: 
  Country: None (occurrence: None)
  Receive Date: 20050815
  Receipt Date: 20050802
  Transmission Date: 20060218
  Serious: Yes (Hospitalization, Disabling, Other)
  Sender: FDA-Public Use
  Company Number: 2005109322

PATIENT
  Age: 53 Year
  Sex: Female
  Weight: 76.6579 kg

DRUGS (5)
  1. LIPITOR [Suspect]
     Indication: BLOOD CHOLESTEROL INCREASED
     Dosage: 20 MG (1 IN 1 D),
     Dates: start: 20030107, end: 20030801
  2. LIPITOR [Suspect]
     Indication: BLOOD TRIGLYCERIDES INCREASED
     Dosage: 20 MG (1 IN 1 D),
     Dates: start: 20030107, end: 20030801
  3. PREMARIN [Concomitant]
  4. MAVIK [Concomitant]
  5. REGLAN [Concomitant]

REACTIONS (92)
  - ABDOMINAL PAIN [None]
  - ALANINE AMINOTRANSFERASE INCREASED [None]
  - ALDOLASE INCREASED [None]
  - ALOPECIA [None]
  - ARTHRALGIA [None]
  - ASPARTATE AMINOTRANSFERASE INCREASED [None]
  - ASTHENIA [None]
  - BACTERIAL INFECTION [None]
  - BLOOD ALBUMIN DECREASED [None]
  - BLOOD ALKALINE PHOSPHATASE INCREASED [None]
  - BLOOD CALCIUM DECREASED [None]
  - BLOOD CHLORIDE DECREASED [None]
  - BLOOD CREATINE PHOSPHOKINASE INCREASED [None]
  - BLOOD CREATININE INCREASED [None]
  - BLOOD UREA INCREASED [None]
  - C-REACTIVE PROTEIN INCREASED [None]
  - CHEST PAIN [None]
  - CHOKING [None]
  - CONSTIPATION [None]
  - COUGH [None]
  - DECUBITUS ULCER [None]
  - DEPRESSION [None]
  - DERMATOMYOSITIS [None]
  - DIABETES MELLITUS [None]
  - DIZZINESS [None]
  - DRY MOUTH [None]
  - DYSARTHRIA [None]
  - DYSPEPSIA [None]
  - DYSPHAGIA [None]
  - DYSPNOEA [None]
  - DYSURIA [None]
  - ECCHYMOSIS [None]
  - ELECTROCARDIOGRAM ABNORMAL [None]
  - FATIGUE [None]
  - FEELING HOT [None]
  - FLANK PAIN [None]
  - FUNGAL INFECTION [None]
  - GASTROINTESTINAL TUBE INSERTION [None]
  - GASTROSTOMY [None]
  - GENITAL PRURITUS FEMALE [None]
  - GLOSSODYNIA [None]
  - HAEMORRHOIDS [None]
  - HEADACHE [None]
  - HEART RATE IRREGULAR [None]
  - HEPATIC STEATOSIS [None]
  - HYPERHIDROSIS [None]
  - HYPERKALAEMIA [None]
  - HYPERTENSION [None]
  - HYPONATRAEMIA [None]
  - HYPOTONIA [None]
  - INFECTION [None]
  - JOINT SWELLING [None]
  - LIVER FUNCTION TEST ABNORMAL [None]
  - LYMPHADENOPATHY [None]
  - MALNUTRITION [None]
  - MUSCLE ATROPHY [None]
  - MUSCLE SPASMS [None]
  - MUSCLE TIGHTNESS [None]
  - MUSCLE TWITCHING [None]
  - MYALGIA [None]
  - MYOPATHY TOXIC [None]
  - MYOSITIS [None]
  - NAUSEA [None]
  - NOCTURIA [None]
  - NOCTURNAL DYSPNOEA [None]
  - OEDEMA PERIPHERAL [None]
  - OESOPHAGEAL DISORDER [None]
  - ONYCHOMYCOSIS [None]
  - OSTEOPOROSIS [None]
  - PAIN [None]
  - PAIN IN EXTREMITY [None]
  - PHARYNGEAL OEDEMA [None]
  - PHARYNGOLARYNGEAL PAIN [None]
  - POLIOMYELITIS [None]
  - POLLAKIURIA [None]
  - POLYMYOSITIS [None]
  - PROTEIN TOTAL DECREASED [None]
  - RASH [None]
  - RENAL PAIN [None]
  - RESPIRATORY RATE DECREASED [None]
  - RHABDOMYOLYSIS [None]
  - SKIN DISCOLOURATION [None]
  - SKIN LESION [None]
  - SWELLING [None]
  - TINNITUS [None]
  - ULCER [None]
  - URINARY TRACT INFECTION [None]
  - UROGENITAL DISORDER [None]
  - VITAL CAPACITY DECREASED [None]
  - VOMITING [None]
  - WEIGHT DECREASED [None]
  - WHEELCHAIR USER [None]
